FAERS Safety Report 14162342 (Version 1)
Quarter: 2017Q4

REPORT INFORMATION
  Report Type: Spontaneous
  Country: CN (occurrence: CN)
  Receive Date: 20171106
  Receipt Date: 20171106
  Transmission Date: 20180321
  Serious: Yes (Other)
  Sender: FDA-Public Use
  Company Number: CN-BAXTER-2017BAX037396

PATIENT
  Age: 52 Year
  Sex: Female
  Weight: 67 kg

DRUGS (1)
  1. 20% MANNITOL INJECTION [Suspect]
     Active Substance: MANNITOL
     Indication: INTERVERTEBRAL DISC PROTRUSION
     Dosage: 120 ML RESIDUAL LIQUID OF 250 ML
     Route: 041
     Dates: start: 20170829, end: 20170829

REACTIONS (1)
  - Pruritus [Recovering/Resolving]

NARRATIVE: CASE EVENT DATE: 20170829
